FAERS Safety Report 25645753 (Version 3)
Quarter: 2025Q4

REPORT INFORMATION
  Report Type: Other
  Country: EU (occurrence: EU)
  Receive Date: 20250805
  Receipt Date: 20251222
  Transmission Date: 20260117
  Serious: Yes (Hospitalization, Disabling, Other)
  Sender: Alora Pharma
  Company Number: EU-VERTICAL PHARMACEUTICALS-2025ALO02392

PATIENT
  Age: 55 Year
  Sex: Female

DRUGS (142)
  1. ESTRADIOL [Suspect]
     Active Substance: ESTRADIOL
     Indication: Product used for unknown indication
     Dosage: UNK
     Dates: start: 2009
  2. NOMEGESTROL ACETATE [Suspect]
     Active Substance: NOMEGESTROL ACETATE
     Indication: Product used for unknown indication
     Dosage: STRENGTH: 5 MG
     Dates: start: 20151020
  3. NOMEGESTROL ACETATE [Suspect]
     Active Substance: NOMEGESTROL ACETATE
     Dosage: STRENGTH: 5 MG
     Dates: start: 20141020
  4. NOMEGESTROL ACETATE [Suspect]
     Active Substance: NOMEGESTROL ACETATE
     Dosage: STRENGTH: 5 MG
     Dates: start: 20160419
  5. NOMEGESTROL ACETATE [Suspect]
     Active Substance: NOMEGESTROL ACETATE
     Dosage: STRENGTH: 5 MG 1 TABLET FOR 20 DAYS
     Dates: start: 20130103
  6. NOMEGESTROL ACETATE [Suspect]
     Active Substance: NOMEGESTROL ACETATE
     Dosage: STRENGTH: 5 MG
     Dates: start: 20160805
  7. NOMEGESTROL ACETATE [Suspect]
     Active Substance: NOMEGESTROL ACETATE
     Dosage: STRENGTH: 5 MG
     Dates: start: 20160315
  8. NOMEGESTROL ACETATE [Suspect]
     Active Substance: NOMEGESTROL ACETATE
     Dosage: STRENGTH: 5 MG
     Dates: start: 20160927
  9. NOMEGESTROL ACETATE [Suspect]
     Active Substance: NOMEGESTROL ACETATE
     Dosage: STRENGTH: 5 MG
     Dates: start: 20160412
  10. NOMEGESTROL ACETATE [Suspect]
     Active Substance: NOMEGESTROL ACETATE
     Dosage: STRENGTH: 5 MG (5 MG,1 D)
     Dates: start: 20160601
  11. NOMEGESTROL ACETATE [Suspect]
     Active Substance: NOMEGESTROL ACETATE
     Dosage: STRENGTH: 5 MG (5 MG,1 D)
     Dates: start: 20160419
  12. NOMEGESTROL ACETATE [Suspect]
     Active Substance: NOMEGESTROL ACETATE
     Dosage: 1 DOSAGE FORM (20 DAY)
     Dates: start: 20131226
  13. NOMEGESTROL ACETATE [Suspect]
     Active Substance: NOMEGESTROL ACETATE
     Dosage: UNK
     Dates: start: 20060801
  14. NOMEGESTROL ACETATE [Suspect]
     Active Substance: NOMEGESTROL ACETATE
     Dosage: UNK
     Dates: start: 20160927
  15. NOMEGESTROL ACETATE [Suspect]
     Active Substance: NOMEGESTROL ACETATE
     Dosage: UNK
     Dates: start: 20040621
  16. NOMEGESTROL ACETATE [Suspect]
     Active Substance: NOMEGESTROL ACETATE
     Dosage: UNK
     Dates: start: 20050208
  17. NOMEGESTROL ACETATE [Suspect]
     Active Substance: NOMEGESTROL ACETATE
     Dosage: 1 DOSAGE FORM (1 TABLET FROM D15 TO D24 FOR 6 MONTHS)
     Dates: start: 20070213
  18. NOMEGESTROL ACETATE [Suspect]
     Active Substance: NOMEGESTROL ACETATE
     Dosage: 1 DOSAGE FORM (20 DAY)
     Dates: start: 20080626
  19. NOMEGESTROL ACETATE [Suspect]
     Active Substance: NOMEGESTROL ACETATE
     Dosage: UNK
     Dates: start: 20110214
  20. NOMEGESTROL ACETATE [Suspect]
     Active Substance: NOMEGESTROL ACETATE
     Dosage: UNK
     Dates: start: 20110301
  21. NOMEGESTROL ACETATE [Suspect]
     Active Substance: NOMEGESTROL ACETATE
     Dosage: UNK
     Dates: start: 20131103
  22. NOMEGESTROL ACETATE [Suspect]
     Active Substance: NOMEGESTROL ACETATE
     Dosage: 10 DAYS A MONTH
     Dates: start: 20100330
  23. NOMEGESTROL ACETATE [Suspect]
     Active Substance: NOMEGESTROL ACETATE
     Dosage: UNK
     Dates: start: 20130211
  24. NOMEGESTROL ACETATE [Suspect]
     Active Substance: NOMEGESTROL ACETATE
     Dosage: UNK
     Dates: start: 20050801
  25. NOMEGESTROL ACETATE [Suspect]
     Active Substance: NOMEGESTROL ACETATE
     Dosage: UNK
     Dates: start: 200306, end: 201604
  26. AZELASTINE HYDROCHLORIDE [Suspect]
     Active Substance: AZELASTINE HYDROCHLORIDE
     Indication: Product used for unknown indication
  27. GESTODENE [Suspect]
     Active Substance: GESTODENE
     Indication: Product used for unknown indication
     Dosage: UNK
     Dates: start: 20060801
  28. GESTODENE [Suspect]
     Active Substance: GESTODENE
     Dosage: UNK
     Dates: start: 20160801
  29. ETHINYL ESTRADIOL [Suspect]
     Active Substance: ETHINYL ESTRADIOL
     Indication: Product used for unknown indication
     Dosage: UNK
     Dates: start: 20060801
  30. ETHINYL ESTRADIOL [Suspect]
     Active Substance: ETHINYL ESTRADIOL
     Dosage: UNK
     Dates: start: 20160801
  31. ESTRADIOL [Suspect]
     Active Substance: ESTRADIOL
     Indication: Product used for unknown indication
     Dosage: UNK
     Dates: start: 2008
  32. CYPROTERONE ACETATE [Suspect]
     Active Substance: CYPROTERONE ACETATE
     Indication: Product used for unknown indication
     Dosage: UNK
     Dates: start: 20090421
  33. CYPROTERONE ACETATE [Suspect]
     Active Substance: CYPROTERONE ACETATE
     Dosage: TAKING A QUARTER OF A TABLET
     Dates: start: 20090424, end: 200910
  34. CYPROTERONE ACETATE [Suspect]
     Active Substance: CYPROTERONE ACETATE
     Dosage: UNK
     Dates: start: 20091222
  35. CYPROTERONE ACETATE [Suspect]
     Active Substance: CYPROTERONE ACETATE
     Dosage: UNK
     Dates: start: 20100330
  36. NOMEGESTROL ACETATE [Suspect]
     Active Substance: NOMEGESTROL ACETATE
     Indication: Product used for unknown indication
     Dosage: UNK
     Dates: start: 20040310
  37. NOMEGESTROL ACETATE [Suspect]
     Active Substance: NOMEGESTROL ACETATE
     Dosage: 1 DOSAGE FORM FOR 20 DAYS
     Dates: start: 20091002
  38. NOMEGESTROL ACETATE [Suspect]
     Active Substance: NOMEGESTROL ACETATE
     Dosage: UNK
     Dates: start: 20151020, end: 20160927
  39. NOMEGESTROL ACETATE [Suspect]
     Active Substance: NOMEGESTROL ACETATE
     Dosage: 1 DOSAGE FORM FOR 20 DAYS
     Dates: start: 20100528
  40. NOMEGESTROL ACETATE [Suspect]
     Active Substance: NOMEGESTROL ACETATE
     Dosage: 1 DOSAGE FORM FOR 20 DAYS
     Dates: start: 20110531
  41. NOMEGESTROL ACETATE [Suspect]
     Active Substance: NOMEGESTROL ACETATE
     Dosage: 1 DOSAGE FORM FOR 20 DAYS
     Dates: start: 20120412
  42. NOMEGESTROL ACETATE [Suspect]
     Active Substance: NOMEGESTROL ACETATE
     Dosage: 1 DOSAGE FORM, 1 TABLET FOR 20 DAYS
     Dates: start: 20130103
  43. NOMEGESTROL ACETATE [Suspect]
     Active Substance: NOMEGESTROL ACETATE
     Dosage: UNK
     Dates: start: 20141020
  44. NOMEGESTROL ACETATE [Suspect]
     Active Substance: NOMEGESTROL ACETATE
     Dosage: 5 MG
     Dates: start: 20160805
  45. NOMEGESTROL ACETATE [Suspect]
     Active Substance: NOMEGESTROL ACETATE
     Dosage: UNK
     Dates: start: 20040621
  46. NOMEGESTROL ACETATE [Suspect]
     Active Substance: NOMEGESTROL ACETATE
     Dosage: 5 MG
     Dates: start: 20160928
  47. NOMEGESTROL ACETATE [Suspect]
     Active Substance: NOMEGESTROL ACETATE
     Dosage: UNK
     Dates: start: 20160928
  48. NOMEGESTROL ACETATE [Suspect]
     Active Substance: NOMEGESTROL ACETATE
     Dosage: UNK
     Dates: start: 20160412
  49. NOMEGESTROL ACETATE [Suspect]
     Active Substance: NOMEGESTROL ACETATE
     Dosage: UNK
     Dates: start: 20050208
  50. NOMEGESTROL ACETATE [Suspect]
     Active Substance: NOMEGESTROL ACETATE
     Dosage: UNK
     Dates: start: 20060801
  51. NOMEGESTROL ACETATE [Suspect]
     Active Substance: NOMEGESTROL ACETATE
     Dosage: FROM D15 TO D24 FOR 6 MONTHS
     Dates: start: 20071213
  52. NOMEGESTROL ACETATE [Suspect]
     Active Substance: NOMEGESTROL ACETATE
     Dosage: 1 TABLET FOR 20 DAYS
     Dates: start: 20080626
  53. NOMEGESTROL ACETATE [Suspect]
     Active Substance: NOMEGESTROL ACETATE
     Dosage: UNK
     Dates: start: 20110214
  54. NOMEGESTROL ACETATE [Suspect]
     Active Substance: NOMEGESTROL ACETATE
     Dosage: 5 MG
     Dates: start: 20160419
  55. NOMEGESTROL ACETATE [Suspect]
     Active Substance: NOMEGESTROL ACETATE
     Dosage: 10 DAYS A MONTH
     Dates: start: 20100330
  56. NOMEGESTROL ACETATE [Suspect]
     Active Substance: NOMEGESTROL ACETATE
     Dosage: UNK
     Dates: start: 20160927
  57. NOMEGESTROL ACETATE [Suspect]
     Active Substance: NOMEGESTROL ACETATE
     Dosage: UNK
     Dates: start: 20160601
  58. NOMEGESTROL ACETATE [Suspect]
     Active Substance: NOMEGESTROL ACETATE
     Dosage: UNK
     Dates: start: 20050801
  59. NOMEGESTROL ACETATE [Suspect]
     Active Substance: NOMEGESTROL ACETATE
     Dosage: UNK
     Dates: start: 20130211
  60. CHLORMADINONE [Suspect]
     Active Substance: CHLORMADINONE
     Indication: Product used for unknown indication
     Dosage: UNK
     Dates: start: 200306, end: 200306
  61. CHLORMADINONE [Suspect]
     Active Substance: CHLORMADINONE
     Dosage: UNK
     Dates: start: 200306, end: 201604
  62. CYPROTERONE ACETATE [Suspect]
     Active Substance: CYPROTERONE ACETATE
     Indication: Product used for unknown indication
     Dosage: UNK
     Dates: start: 20040621
  63. CYPROTERONE ACETATE [Suspect]
     Active Substance: CYPROTERONE ACETATE
     Dosage: UNK
     Dates: start: 20050208
  64. CYPROTERONE ACETATE [Suspect]
     Active Substance: CYPROTERONE ACETATE
     Dosage: (1/4 TABLET/DAY) (1 D)
     Dates: start: 2009
  65. ETHINYL ESTRADIOL\GESTODENE [Suspect]
     Active Substance: ETHINYL ESTRADIOL\GESTODENE
     Indication: Product used for unknown indication
     Dosage: UNK
     Dates: start: 20250628
  66. ETHINYL ESTRADIOL\GESTODENE [Suspect]
     Active Substance: ETHINYL ESTRADIOL\GESTODENE
     Dosage: [01-AUG-2006 - STOPPED]
     Dates: start: 20060801
  67. CHLORMADINONE ACETATE [Suspect]
     Active Substance: CHLORMADINONE ACETATE
     Indication: Product used for unknown indication
     Dosage: UNK
     Dates: start: 200306, end: 200306
  68. ETHINYL ESTRADIOL\GESTODENE [Suspect]
     Active Substance: ETHINYL ESTRADIOL\GESTODENE
     Indication: Product used for unknown indication
     Dosage: NOT SUPPORTED
     Dates: start: 20051213
  69. ETHINYL ESTRADIOL\GESTODENE [Suspect]
     Active Substance: ETHINYL ESTRADIOL\GESTODENE
     Dosage: UNK
     Dates: start: 20060921
  70. ETHINYL ESTRADIOL\GESTODENE [Suspect]
     Active Substance: ETHINYL ESTRADIOL\GESTODENE
     Dosage: NOT SUPPORTED
     Dates: start: 20060904
  71. AZELASTINE HYDROCHLORIDE [Suspect]
     Active Substance: AZELASTINE HYDROCHLORIDE
     Indication: Product used for unknown indication
     Dosage: UNK
  72. NOMEGESTROL ACETATE [Suspect]
     Active Substance: NOMEGESTROL ACETATE
     Indication: Product used for unknown indication
     Dosage: STRENGTH: 5MG
     Dates: start: 20141020
  73. NOMEGESTROL ACETATE [Suspect]
     Active Substance: NOMEGESTROL ACETATE
     Dosage: STRENGTH: 5 MG
     Dates: start: 20121212
  74. NOMEGESTROL ACETATE [Suspect]
     Active Substance: NOMEGESTROL ACETATE
     Dosage: STRENGTH: 5MG
     Dates: start: 20130613
  75. NOMEGESTROL ACETATE [Suspect]
     Active Substance: NOMEGESTROL ACETATE
     Dosage: STRENGTH: 5MG
     Dates: start: 20160315
  76. NOMEGESTROL ACETATE [Suspect]
     Active Substance: NOMEGESTROL ACETATE
     Dosage: STRENGTH: 5MG
     Dates: start: 20130211
  77. NOMEGESTROL ACETATE [Suspect]
     Active Substance: NOMEGESTROL ACETATE
     Dosage: STRENGTH: 5MG
  78. NOMEGESTROL ACETATE [Suspect]
     Active Substance: NOMEGESTROL ACETATE
     Dosage: STRENGTH: 5MG
     Dates: start: 20131226
  79. NOMEGESTROL ACETATE [Suspect]
     Active Substance: NOMEGESTROL ACETATE
     Dosage: STRENGTH: 5MG
     Dates: start: 20130111
  80. NOMEGESTROL ACETATE [Suspect]
     Active Substance: NOMEGESTROL ACETATE
     Dosage: STRENGTH: 5MG
     Dates: start: 20160412
  81. NOMEGESTROL ACETATE [Suspect]
     Active Substance: NOMEGESTROL ACETATE
     Dosage: STRENGTH: 5MG
     Dates: start: 20130211
  82. NOMEGESTROL ACETATE [Suspect]
     Active Substance: NOMEGESTROL ACETATE
     Dosage: STRENGTH: 5MG
     Dates: start: 20130724
  83. NOMEGESTROL ACETATE [Suspect]
     Active Substance: NOMEGESTROL ACETATE
     Dosage: UNK
     Dates: start: 20121214
  84. NOMEGESTROL ACETATE [Suspect]
     Active Substance: NOMEGESTROL ACETATE
     Dosage: UNK
     Dates: start: 20151020
  85. NOMEGESTROL ACETATE [Suspect]
     Active Substance: NOMEGESTROL ACETATE
     Dosage: 5 MG
  86. ETHINYL ESTRADIOL\GESTODENE [Suspect]
     Active Substance: ETHINYL ESTRADIOL\GESTODENE
     Indication: Product used for unknown indication
     Dosage: [01-AUG-2006 - STOPPED]
     Dates: start: 20060801
  87. NOMEGESTROL ACETATE [Suspect]
     Active Substance: NOMEGESTROL ACETATE
     Indication: Product used for unknown indication
     Dosage: UNK
     Dates: start: 20050801
  88. NOMEGESTROL ACETATE [Suspect]
     Active Substance: NOMEGESTROL ACETATE
     Dosage: THERAMEX 10 DAYS A MONTH
     Dates: start: 20100330
  89. NOMEGESTROL ACETATE [Suspect]
     Active Substance: NOMEGESTROL ACETATE
     Dosage: UNK
     Dates: start: 20110301
  90. NOMEGESTROL ACETATE [Suspect]
     Active Substance: NOMEGESTROL ACETATE
     Dosage: 1 DOSAGE FORM
     Dates: start: 20110531
  91. NOMEGESTROL ACETATE [Suspect]
     Active Substance: NOMEGESTROL ACETATE
     Dosage: 1 DOSAGE FORM
     Dates: start: 20110531
  92. NOMEGESTROL ACETATE [Suspect]
     Active Substance: NOMEGESTROL ACETATE
     Dosage: 1 DOSAGE FORM
     Dates: start: 20040310
  93. NOMEGESTROL ACETATE [Suspect]
     Active Substance: NOMEGESTROL ACETATE
     Dosage: 1 DOSAGE FORM
     Dates: start: 20130103
  94. NOMEGESTROL ACETATE [Suspect]
     Active Substance: NOMEGESTROL ACETATE
     Dosage: 1 DOSAGE FORM
     Dates: start: 20091002
  95. NOMEGESTROL ACETATE [Suspect]
     Active Substance: NOMEGESTROL ACETATE
     Dosage: 1 DOSAGE FORM
     Dates: start: 20120412
  96. NOMEGESTROL ACETATE [Suspect]
     Active Substance: NOMEGESTROL ACETATE
     Dosage: 1 DOSAGE FORM
     Dates: start: 20131226
  97. NOMEGESTROL ACETATE [Suspect]
     Active Substance: NOMEGESTROL ACETATE
     Dosage: 1 DOSAGE FORM
     Dates: start: 20100528
  98. NOMEGESTROL ACETATE [Suspect]
     Active Substance: NOMEGESTROL ACETATE
     Dosage: 1 DOSAGE FORM
     Dates: start: 20131226
  99. NOMEGESTROL ACETATE [Suspect]
     Active Substance: NOMEGESTROL ACETATE
     Dosage: 5 MG
     Dates: start: 20130724
  100. NOMEGESTROL ACETATE [Suspect]
     Active Substance: NOMEGESTROL ACETATE
     Dosage: NOMEGESTROL 5 MG MERCK
     Dates: start: 20130211
  101. NOMEGESTROL ACETATE [Suspect]
     Active Substance: NOMEGESTROL ACETATE
     Dosage: LUTENYL 5MG TEVA
     Dates: start: 20160601
  102. NOMEGESTROL ACETATE [Suspect]
     Active Substance: NOMEGESTROL ACETATE
     Dosage: THERAMEX
     Dates: start: 20110214
  103. NOMEGESTROL ACETATE [Suspect]
     Active Substance: NOMEGESTROL ACETATE
     Indication: Product used for unknown indication
     Dosage: 10 DAYS A MONTH
     Dates: start: 20100330
  104. NOMEGESTROL ACETATE [Suspect]
     Active Substance: NOMEGESTROL ACETATE
     Dosage: UNK
     Dates: start: 20110214
  105. NOMEGESTROL ACETATE [Suspect]
     Active Substance: NOMEGESTROL ACETATE
     Dosage: UNK
     Dates: start: 20110301
  106. NOMEGESTROL ACETATE [Suspect]
     Active Substance: NOMEGESTROL ACETATE
     Dosage: STRENGTH: 5MG  DOSE: 1 TABLET FOR 20 DAYS
     Dates: start: 20110531
  107. NOMEGESTROL ACETATE [Suspect]
     Active Substance: NOMEGESTROL ACETATE
     Dosage: STRENGTH: 5MG  DOSE: 1 TABLET FROM D15 TO D 24 FOR 6 MONTHS
     Dates: start: 20070213
  108. NOMEGESTROL ACETATE [Suspect]
     Active Substance: NOMEGESTROL ACETATE
     Dosage: UNK
     Dates: start: 20040310
  109. NOMEGESTROL ACETATE [Suspect]
     Active Substance: NOMEGESTROL ACETATE
     Dosage: 1 TABLET FOR 20 DAYS
     Dates: start: 20091002
  110. NOMEGESTROL ACETATE [Suspect]
     Active Substance: NOMEGESTROL ACETATE
     Dosage: UNK
     Dates: start: 20050208
  111. NOMEGESTROL ACETATE [Suspect]
     Active Substance: NOMEGESTROL ACETATE
     Dosage: 1 TABLET FOR 20 DAYS
     Dates: start: 20120412
  112. NOMEGESTROL ACETATE [Suspect]
     Active Substance: NOMEGESTROL ACETATE
     Dosage: 1 TABLET FOR 20 DAYS
     Dates: start: 20080626
  113. NOMEGESTROL ACETATE [Suspect]
     Active Substance: NOMEGESTROL ACETATE
     Dosage: UNK
     Dates: start: 20111103
  114. NOMEGESTROL ACETATE [Suspect]
     Active Substance: NOMEGESTROL ACETATE
     Dosage: 5 DOSAGE FORM
     Dates: start: 20130613
  115. NOMEGESTROL ACETATE [Suspect]
     Active Substance: NOMEGESTROL ACETATE
     Dosage: UNK
     Dates: start: 20040621
  116. NOMEGESTROL ACETATE [Suspect]
     Active Substance: NOMEGESTROL ACETATE
     Dosage: UNK
     Dates: start: 20050208
  117. NOMEGESTROL ACETATE [Suspect]
     Active Substance: NOMEGESTROL ACETATE
     Dosage: UNK
     Dates: start: 20050801
  118. NOMEGESTROL ACETATE [Suspect]
     Active Substance: NOMEGESTROL ACETATE
     Indication: Product used for unknown indication
     Dosage: UNK
     Dates: start: 20040310
  119. NOMEGESTROL ACETATE [Suspect]
     Active Substance: NOMEGESTROL ACETATE
     Dosage: 1 DOSAGE FORM, 1 TABLET FOR 20 DAYS
     Dates: start: 20091002
  120. NOMEGESTROL ACETATE [Suspect]
     Active Substance: NOMEGESTROL ACETATE
     Dosage: UNK
     Dates: start: 20151020
  121. NOMEGESTROL ACETATE [Suspect]
     Active Substance: NOMEGESTROL ACETATE
     Dosage: 1 DOSAGE FORM, 1 TABLET FOR 20 DAYS
     Dates: start: 20100528
  122. NOMEGESTROL ACETATE [Suspect]
     Active Substance: NOMEGESTROL ACETATE
     Dosage: 1 DOSAGE FORM, 1 TABLET FOR 20 DAYS
     Dates: start: 20110531
  123. NOMEGESTROL ACETATE [Suspect]
     Active Substance: NOMEGESTROL ACETATE
     Dosage: 1 DOSAGE FORM, 1 TABLET FOR 20 DAYS
     Dates: start: 20120412
  124. NOMEGESTROL ACETATE [Suspect]
     Active Substance: NOMEGESTROL ACETATE
     Dosage: 1 DOSAGE FORM, 1 TABLET FOR 20 DAYS
     Dates: start: 20130103
  125. NOMEGESTROL ACETATE [Suspect]
     Active Substance: NOMEGESTROL ACETATE
     Dosage: UNK
     Dates: start: 20141020
  126. NOMEGESTROL ACETATE [Suspect]
     Active Substance: NOMEGESTROL ACETATE
     Dosage: UNK
     Dates: start: 20160805
  127. NOMEGESTROL ACETATE [Suspect]
     Active Substance: NOMEGESTROL ACETATE
     Dosage: UNK
     Dates: start: 20040621
  128. NOMEGESTROL ACETATE [Suspect]
     Active Substance: NOMEGESTROL ACETATE
     Dosage: UNK
     Dates: start: 20160928
  129. NOMEGESTROL ACETATE [Suspect]
     Active Substance: NOMEGESTROL ACETATE
     Dosage: UNK
     Dates: start: 20160412
  130. NOMEGESTROL ACETATE [Suspect]
     Active Substance: NOMEGESTROL ACETATE
     Dosage: UNK
     Dates: start: 20050208
  131. NOMEGESTROL ACETATE [Suspect]
     Active Substance: NOMEGESTROL ACETATE
     Dosage: UNK
     Dates: start: 20060801
  132. NOMEGESTROL ACETATE [Suspect]
     Active Substance: NOMEGESTROL ACETATE
     Dosage: FROM D15 TO D24 FOR 6 MONTHS
     Dates: start: 20071213
  133. NOMEGESTROL ACETATE [Suspect]
     Active Substance: NOMEGESTROL ACETATE
     Dosage: 1 TABLET FOR 20 DAYS
     Dates: start: 20080626
  134. NOMEGESTROL ACETATE [Suspect]
     Active Substance: NOMEGESTROL ACETATE
     Dosage: UNK
     Dates: start: 20110214
  135. NOMEGESTROL ACETATE [Suspect]
     Active Substance: NOMEGESTROL ACETATE
     Dosage: TEVA. 5 MILLIGRAMS
     Dates: start: 20160419
  136. NOMEGESTROL ACETATE [Suspect]
     Active Substance: NOMEGESTROL ACETATE
     Dosage: 10 DAYS A MONTH
     Dates: start: 20100330
  137. NOMEGESTROL ACETATE [Suspect]
     Active Substance: NOMEGESTROL ACETATE
     Dosage: UNK
     Dates: start: 20160927
  138. NOMEGESTROL ACETATE [Suspect]
     Active Substance: NOMEGESTROL ACETATE
     Dosage: UNK
     Dates: start: 20050801
  139. NOMEGESTROL ACETATE [Suspect]
     Active Substance: NOMEGESTROL ACETATE
     Dosage: UNK
     Dates: start: 20130211
  140. NOMEGESTROL [Concomitant]
     Active Substance: NOMEGESTROL
     Dosage: 1 DOSAGE FORM
     Dates: start: 20040310
  141. NOMEGESTROL [Concomitant]
     Active Substance: NOMEGESTROL
     Dosage: 1 DOSAGE FORM
     Dates: start: 20040621
  142. NOMEGESTROL [Concomitant]
     Active Substance: NOMEGESTROL
     Dosage: 1 DOSAGE FORM
     Dates: start: 20121214

REACTIONS (38)
  - Meningioma [Unknown]
  - Deafness [Unknown]
  - Dysdiadochokinesis [Unknown]
  - Sensory disturbance [Unknown]
  - Gait disturbance [Unknown]
  - Migraine [Unknown]
  - Ear canal injury [Unknown]
  - Scar pain [Unknown]
  - Tinnitus [Recovered/Resolved]
  - Fall [Unknown]
  - Condition aggravated [Unknown]
  - Disturbance in attention [Unknown]
  - Ear pain [Unknown]
  - Disability [Not Recovered/Not Resolved]
  - Neck pain [Unknown]
  - Meniere^s disease [Unknown]
  - Anterograde amnesia [Unknown]
  - Balance disorder [Unknown]
  - Torticollis [Unknown]
  - Vestibular disorder [Unknown]
  - Retrograde amnesia [Unknown]
  - Narcolepsy [Unknown]
  - Hypoacusis [Unknown]
  - Hypogeusia [Unknown]
  - Alopecia [Unknown]
  - Dizziness [Recovered/Resolved]
  - Temporomandibular pain and dysfunction syndrome [Unknown]
  - Parosmia [Unknown]
  - Romberg test positive [Unknown]
  - Impaired quality of life [Unknown]
  - Weight increased [Unknown]
  - Feeling abnormal [Recovered/Resolved]
  - Phonophobia [Unknown]
  - Psychomotor retardation [Unknown]
  - Claustrophobia [Unknown]
  - Nausea [Unknown]
  - Neuroma [Unknown]
  - Hyperacusis [Unknown]

NARRATIVE: CASE EVENT DATE: 20150401
